FAERS Safety Report 11863620 (Version 1)
Quarter: 2015Q4

REPORT INFORMATION
  Report Type: Spontaneous
  Country: US (occurrence: US)
  Receive Date: 20151223
  Receipt Date: 20151223
  Transmission Date: 20160305
  Serious: Yes (Hospitalization)
  Sender: FDA-Public Use
  Company Number: US-BAYER-2015-446466

PATIENT
  Age: 67 Year
  Sex: Female

DRUGS (23)
  1. ADEMPAS [Suspect]
     Active Substance: RIOCIGUAT
     Indication: PULMONARY HYPERTENSION
     Dosage: 1.5 MG, UNK
  2. AMITRIPTYLINE [Concomitant]
     Active Substance: AMITRIPTYLINE
  3. BECLOMETHASONE [Concomitant]
     Active Substance: BECLOMETHASONE
  4. CLONAZEPAM. [Concomitant]
     Active Substance: CLONAZEPAM
  5. LORAZEPAM. [Concomitant]
     Active Substance: LORAZEPAM
  6. SENNA [Concomitant]
     Active Substance: SENNA LEAF\SENNOSIDES\SENNOSIDES A AND B
  7. SPIRONOLACTONE. [Concomitant]
     Active Substance: SPIRONOLACTONE
  8. LEVALBUTEROL. [Concomitant]
     Active Substance: LEVALBUTEROL
  9. PANTOPRAZOLE [Concomitant]
     Active Substance: PANTOPRAZOLE SODIUM
  10. ADEMPAS [Suspect]
     Active Substance: RIOCIGUAT
     Indication: PULMONARY HYPERTENSION
     Dosage: 1 MG, UNK
     Dates: start: 20150911
  11. ACETAMINOPHEN. [Concomitant]
     Active Substance: ACETAMINOPHEN
  12. DOCUSATE [Concomitant]
     Active Substance: DOCUSATE
  13. DIGOXIN. [Concomitant]
     Active Substance: DIGOXIN
  14. MORPHINE [Concomitant]
     Active Substance: MORPHINE
  15. OCEAN NASAL [Concomitant]
  16. BISACODYL. [Concomitant]
     Active Substance: BISACODYL
  17. METOPROLOL [Concomitant]
     Active Substance: METOPROLOL
  18. POLYETHYLENE GLYCOL [Concomitant]
     Active Substance: POLYETHYLENE GLYCOLS
  19. HYOSCYAMINE. [Concomitant]
     Active Substance: HYOSCYAMINE
  20. BENZOCAINE-MENTHOL [Concomitant]
     Route: 061
  21. DICYCLOMINE [Concomitant]
     Active Substance: DICYCLOMINE HYDROCHLORIDE
  22. DILTIAZEM [Concomitant]
     Active Substance: DILTIAZEM
  23. ONDANSETRON [Concomitant]
     Active Substance: ONDANSETRON

REACTIONS (2)
  - Cardiac failure [None]
  - Dyspnoea [None]
